FAERS Safety Report 5738506-5 (Version None)
Quarter: 2008Q2

REPORT INFORMATION
  Report Type: 
  Country: None (occurrence: None)
  Receive Date: 20080515
  Receipt Date: 20080501
  Transmission Date: 20081010
  Serious: Yes (Life-Threatening, Hospitalization, Disabling, Other)
  Sender: FDA-Public Use
  Company Number: US-ROCHE-356278

PATIENT
  Sex: Female
  Weight: 65.8 kg

DRUGS (1)
  1. ACCUTANE [Suspect]
     Route: 048
     Dates: start: 19961229, end: 19970221

REACTIONS (52)
  - AGITATION [None]
  - ANAEMIA MEGALOBLASTIC [None]
  - ANAL FISSURE [None]
  - AORTIC VALVE INCOMPETENCE [None]
  - APHASIA [None]
  - AUTOIMMUNE DISORDER [None]
  - BENIGN INTRACRANIAL HYPERTENSION [None]
  - CERVICOBRACHIAL SYNDROME [None]
  - CLUMSINESS [None]
  - COLITIS ULCERATIVE [None]
  - CONFUSIONAL STATE [None]
  - CUSHING'S SYNDROME [None]
  - DEPRESSION [None]
  - DERMAL CYST [None]
  - DYSPHAGIA [None]
  - DYSPHEMIA [None]
  - DYSTHYMIC DISORDER [None]
  - ENCOPRESIS [None]
  - FATIGUE [None]
  - HAEMOLYTIC ANAEMIA [None]
  - HALLUCINATION [None]
  - HEADACHE [None]
  - HEPATITIS [None]
  - HYPERTENSION [None]
  - ILL-DEFINED DISORDER [None]
  - INFLAMMATORY BOWEL DISEASE [None]
  - INTERVERTEBRAL DISC DEGENERATION [None]
  - IRRITABILITY [None]
  - IRRITABLE BOWEL SYNDROME [None]
  - JOINT SWELLING [None]
  - LUPUS NEPHRITIS [None]
  - MEGACOLON [None]
  - MEMORY IMPAIRMENT [None]
  - MITRAL VALVE INCOMPETENCE [None]
  - MYOPIA [None]
  - NASAL DRYNESS [None]
  - NERVOUS SYSTEM DISORDER [None]
  - NIGHTMARE [None]
  - PANCREATITIS [None]
  - PANCYTOPENIA [None]
  - PERICARDIAL EFFUSION [None]
  - POLYP [None]
  - RENAL FAILURE [None]
  - STAPHYLOCOCCAL INFECTION [None]
  - STRESS [None]
  - SYNCOPE [None]
  - SYSTEMIC LUPUS ERYTHEMATOSUS [None]
  - TRICUSPID VALVE INCOMPETENCE [None]
  - UROGENITAL PROLAPSE [None]
  - VASCULITIS [None]
  - VULVOVAGINAL MYCOTIC INFECTION [None]
  - WEGENER'S GRANULOMATOSIS [None]
